FAERS Safety Report 6877067-4 (Version None)
Quarter: 2010Q3

REPORT INFORMATION
  Report Type: 
  Country: None (occurrence: None)
  Receive Date: 20100727
  Receipt Date: 20100727
  Transmission Date: 20110219
  Serious: No
  Sender: FDA-Public Use
  Company Number: None

PATIENT
  Age: 67 Year
  Sex: Female
  Weight: 77.1115 kg

DRUGS (1)
  1. SIMVASTATIN [Suspect]
     Indication: BLOOD CHOLESTEROL INCREASED
     Dosage: 20MG 1X PER DAY PO
     Route: 048
     Dates: start: 20100404, end: 20100506

REACTIONS (10)
  - ABDOMINAL DISCOMFORT [None]
  - DEAFNESS NEUROSENSORY [None]
  - DEAFNESS UNILATERAL [None]
  - FATIGUE [None]
  - FREQUENT BOWEL MOVEMENTS [None]
  - HYPERSENSITIVITY [None]
  - ONYCHOCLASIS [None]
  - RASH ERYTHEMATOUS [None]
  - VIRAL INFECTION [None]
  - VISION BLURRED [None]
